FAERS Safety Report 7037320-0 (Version None)
Quarter: 2010Q4

REPORT INFORMATION
  Report Type: 
  Country: None (occurrence: None)
  Receive Date: 20101011
  Receipt Date: 20100928
  Transmission Date: 20110411
  Serious: Yes (Other)
  Sender: FDA-Public Use
  Company Number: DE-ROCHE-731851

PATIENT

DRUGS (2)
  1. BEVACIZUMAB [Suspect]
     Route: 065
     Dates: start: 20090209, end: 20090714
  2. PACLITAXEL [Concomitant]
     Dates: start: 20090217

REACTIONS (1)
  - MALIGNANT NEOPLASM PROGRESSION [None]
